FAERS Safety Report 16165183 (Version 3)
Quarter: 2019Q2

REPORT INFORMATION
  Report Type: Report from Study
  Country: US (occurrence: US)
  Receive Date: 20190405
  Receipt Date: 20190624
  Transmission Date: 20190711
  Serious: Yes (Hospitalization)
  Sender: FDA-Public Use
  Company Number: US-ACTELION-A-US2016-136215

PATIENT
  Age: 60 Year
  Sex: Female
  Weight: 52.15 kg

DRUGS (9)
  1. VELETRI [Suspect]
     Active Substance: EPOPROSTENOL
     Indication: PULMONARY ARTERIAL HYPERTENSION
     Dosage: 40.36 NG/KG, PER MIN
     Route: 042
  2. ADEMPAS [Concomitant]
     Active Substance: RIOCIGUAT
  3. VELETRI [Suspect]
     Active Substance: EPOPROSTENOL
     Dosage: UNK
     Route: 042
  4. ADCIRCA [Concomitant]
     Active Substance: TADALAFIL
  5. VELETRI [Suspect]
     Active Substance: EPOPROSTENOL
     Dosage: 40.36 NG/KG, PER MIN
     Route: 042
  6. OPSUMIT [Concomitant]
     Active Substance: MACITENTAN
     Dosage: UNK
     Dates: start: 20190117
  7. TYVASO [Concomitant]
     Active Substance: TREPROSTINIL
  8. OXYGEN. [Concomitant]
     Active Substance: OXYGEN
  9. ELIQUIS [Concomitant]
     Active Substance: APIXABAN

REACTIONS (14)
  - Pain in jaw [Unknown]
  - Arthralgia [Unknown]
  - Dyspnoea exertional [Unknown]
  - Thrombosis [Unknown]
  - Dyspnoea [Unknown]
  - Headache [Unknown]
  - Nausea [Unknown]
  - Upper respiratory tract congestion [Unknown]
  - Upper respiratory tract infection [Unknown]
  - Chest pain [Unknown]
  - Rash [Unknown]
  - Respiratory failure [Unknown]
  - Therapy non-responder [Unknown]
  - Pain in extremity [Unknown]

NARRATIVE: CASE EVENT DATE: 201604
